FAERS Safety Report 6285040-2 (Version None)
Quarter: 2009Q3

REPORT INFORMATION
  Report Type: 
  Country: None (occurrence: None)
  Receive Date: 20090727
  Receipt Date: 20090720
  Transmission Date: 20100115
  Serious: Yes (Other)
  Sender: FDA-Public Use
  Company Number: US-BAYER-200919365NA

PATIENT
  Age: 48 Year
  Sex: Female

DRUGS (1)
  1. NEXAVAR [Suspect]
     Indication: RENAL CANCER METASTATIC
     Dosage: TOTAL DAILY DOSE: 400 MG  UNIT DOSE: 200 MG
     Route: 048
     Dates: start: 20020101

REACTIONS (5)
  - EYE INFLAMMATION [None]
  - MACULAR OEDEMA [None]
  - RETINAL HAEMORRHAGE [None]
  - SARCOIDOSIS [None]
  - VISUAL IMPAIRMENT [None]
